FAERS Safety Report 14058166 (Version 2)
Quarter: 2017Q4

REPORT INFORMATION
  Report Type: Spontaneous
  Country: US (occurrence: US)
  Receive Date: 20171006
  Receipt Date: 20171016
  Transmission Date: 20180321
  Serious: Yes (Hospitalization)
  Sender: FDA-Public Use
  Company Number: US-ACTELION-A-US2017-160470

PATIENT
  Age: 11 Year
  Sex: Female

DRUGS (12)
  1. ZAVESCA [Suspect]
     Active Substance: MIGLUSTAT
     Indication: GAUCHER^S DISEASE
     Dosage: 100 MG, TID
     Route: 048
     Dates: start: 20170913
  2. MAGNESIUM OXIDE. [Concomitant]
     Active Substance: MAGNESIUM OXIDE
     Dosage: UNK
     Route: 048
     Dates: start: 20170913
  3. DIPHENHIST [Concomitant]
     Active Substance: DIPHENHYDRAMINE HYDROCHLORIDE
     Dosage: 5 ML, UNK
     Route: 048
     Dates: start: 20170830
  4. VPRIV [Concomitant]
     Active Substance: VELAGLUCERASE ALFA
     Dosage: 1300 U, Q2 WEEKS
     Route: 042
  5. SODIUM PHOSPHATE [Concomitant]
     Active Substance: SODIUM PHOSPHATE
  6. KEPPRA [Concomitant]
     Active Substance: LEVETIRACETAM
     Dosage: 7.5 ML, UNK
     Route: 048
     Dates: start: 20170830
  7. IBUPROFEN. [Concomitant]
     Active Substance: IBUPROFEN
     Dosage: 7.5 ML, UNK
     Route: 048
     Dates: start: 20170913
  8. ACETAMINOPHEN. [Concomitant]
     Active Substance: ACETAMINOPHEN
     Dosage: 6 ML, UNK
     Route: 048
     Dates: start: 20170913
  9. MIRALAX [Concomitant]
     Active Substance: POLYETHYLENE GLYCOL 3350
     Dosage: 17 G, Q3DAYS
     Route: 048
     Dates: start: 20170913
  10. PULMICORT TURBUHALER [Concomitant]
     Active Substance: BUDESONIDE
     Dosage: UNK
     Dates: start: 20170830
  11. ALBUTEROL. [Concomitant]
     Active Substance: ALBUTEROL
     Dosage: UNK, Q4HRS
     Dates: start: 20170830
  12. KEPPRA [Concomitant]
     Active Substance: LEVETIRACETAM
     Dosage: 400 MG, QD
     Route: 048

REACTIONS (3)
  - Anaemia [Recovering/Resolving]
  - Protein total decreased [Unknown]
  - Hypoalbuminaemia [Recovering/Resolving]
